FAERS Safety Report 25854009 (Version 2)
Quarter: 2025Q4

REPORT INFORMATION
  Report Type: Spontaneous
  Country: US (occurrence: US)
  Receive Date: 20250926
  Receipt Date: 20251017
  Transmission Date: 20260118
  Serious: No
  Sender: NIVAGEN PHARMACEUTICALS INC
  Company Number: US-NPI-000140

PATIENT
  Age: 76 Year
  Sex: Female
  Weight: 66 kg

DRUGS (1)
  1. HYDROQUINONE [Suspect]
     Active Substance: HYDROQUINONE
     Indication: Pigmentation disorder
     Dosage: SINGLE NIGHTTIME APPLICATION ONLY ONCE
     Route: 061
     Dates: start: 20250905, end: 20250906

REACTIONS (2)
  - Product design issue [Unknown]
  - Erythema [Not Recovered/Not Resolved]

NARRATIVE: CASE EVENT DATE: 20250906
